FAERS Safety Report 6633621-6 (Version None)
Quarter: 2010Q1

REPORT INFORMATION
  Report Type: 
  Country: None (occurrence: None)
  Receive Date: 20100312
  Receipt Date: 20100305
  Transmission Date: 20100710
  Serious: Yes (Death)
  Sender: FDA-Public Use
  Company Number: DE-MERCK-1001DEU00109

PATIENT
  Age: 54 Year
  Sex: Female

DRUGS (3)
  1. MAXALT [Suspect]
     Indication: MIGRAINE
     Route: 048
     Dates: start: 20080401, end: 20090901
  2. FORMOTEROL FUMARATE [Concomitant]
     Indication: ASTHMA
     Route: 055
  3. DIPYRONE [Concomitant]
     Indication: TRIGEMINAL NEURALGIA
     Route: 048
     Dates: start: 20080101

REACTIONS (4)
  - ANGIOEDEMA [None]
  - ARRHYTHMIA [None]
  - CARDIAC FAILURE [None]
  - MALAISE [None]
